FAERS Safety Report 7463820-5 (Version None)
Quarter: 2011Q2

REPORT INFORMATION
  Report Type: 
  Country: None (occurrence: None)
  Receive Date: 20110506
  Receipt Date: 20110428
  Transmission Date: 20111010
  Serious: Yes (Hospitalization, Other)
  Sender: FDA-Public Use
  Company Number: US-SANOFI-AVENTIS-2011SA026796

PATIENT
  Age: 61 Year
  Sex: Female

DRUGS (3)
  1. LANTUS [Suspect]
     Indication: TYPE 2 DIABETES MELLITUS
  2. LANTUS [Suspect]
     Dosage: DOSE:40 UNIT(S)
     Route: 058
  3. LANTUS [Suspect]
     Indication: TYPE 2 DIABETES MELLITUS
     Dosage: DOSE:30 UNIT(S)
     Route: 058

REACTIONS (3)
  - ABASIA [None]
  - BLOOD GLUCOSE INCREASED [None]
  - HYPERGLYCAEMIA [None]
